FAERS Safety Report 21851355 (Version 2)
Quarter: 2023Q2

REPORT INFORMATION
  Report Type: Report from Study
  Country: US (occurrence: US)
  Receive Date: 20230112
  Receipt Date: 20230506
  Transmission Date: 20230722
  Serious: No
  Sender: FDA-Public Use
  Company Number: US-ABBVIE-4266879

PATIENT
  Sex: Female

DRUGS (2)
  1. CREON [Suspect]
     Active Substance: PANCRELIPASE AMYLASE\PANCRELIPASE LIPASE\PANCRELIPASE PROTEASE
     Indication: Neoplasm malignant
     Dosage: 4 CAPS EACH MEAL, 3 CAPS EACH SNACK?FORM STRENGTH : 36000 UNIT
     Route: 048
     Dates: start: 2017
  2. CREON [Suspect]
     Active Substance: PANCRELIPASE AMYLASE\PANCRELIPASE LIPASE\PANCRELIPASE PROTEASE
     Indication: Neoplasm malignant
     Dosage: 4 CAPS EACH MEAL, 3 CAPS EACH SNACK?FIRST ADMIN DATE ON 2017
     Route: 048

REACTIONS (2)
  - Diarrhoea [Unknown]
  - Unevaluable event [Unknown]
